FAERS Safety Report 4300205-4 (Version None)
Quarter: 2004Q1

REPORT INFORMATION
  Report Type: 
  Country: None (occurrence: None)
  Receive Date: 20040218
  Receipt Date: 20040210
  Transmission Date: 20041129
  Serious: Yes (Life-Threatening, Hospitalization, Other)
  Sender: FDA-Public Use
  Company Number: 2004005976

PATIENT
  Age: 29 Year
  Sex: Male
  Weight: 74 kg

DRUGS (8)
  1. VFEND [Suspect]
     Indication: BRONCHOPULMONARY ASPERGILLOSIS
     Dosage: INTRAVENOUS
     Route: 042
     Dates: start: 20031210, end: 20031221
  2. LOXAPINE SUCCINATE [Concomitant]
  3. MIDAZOLAM HCL [Concomitant]
  4. FENTANYL [Concomitant]
  5. CEFTAZIDIME SODIUM [Concomitant]
  6. ACETAZOLAMIDE [Concomitant]
  7. OMEPRAZOLE [Concomitant]
  8. CLINOME (GLUCOSE, CALCIUM CHLORIDE DIHYDRATE, AMINO ACIDS NOS, ELECTRO [Concomitant]

REACTIONS (3)
  - ACUTE PULMONARY OEDEMA [None]
  - DIALYSIS [None]
  - RENAL FAILURE ACUTE [None]
